FAERS Safety Report 8399733-4 (Version None)
Quarter: 2012Q2

REPORT INFORMATION
  Report Type: 
  Country: None (occurrence: None)
  Receive Date: 20120531
  Receipt Date: 20120517
  Transmission Date: 20120825
  Serious: No
  Sender: FDA-Public Use
  Company Number: US-ASTRAZENECA-2012SE31941

PATIENT
  Age: 87 Year
  Sex: Female
  Weight: 38.6 kg

DRUGS (1)
  1. CRESTOR [Suspect]
     Route: 048

REACTIONS (6)
  - LOSS OF CONSCIOUSNESS [None]
  - MALAISE [None]
  - DIZZINESS [None]
  - ABDOMINAL DISCOMFORT [None]
  - NAUSEA [None]
  - FEELING ABNORMAL [None]
